FAERS Safety Report 8287373-7 (Version None)
Quarter: 2012Q2

REPORT INFORMATION
  Report Type: 
  Country: None (occurrence: None)
  Receive Date: 20120416
  Receipt Date: 20120412
  Transmission Date: 20120825
  Serious: Yes (Hospitalization, Other)
  Sender: FDA-Public Use
  Company Number: JP-PFIZER INC-2012076596

PATIENT
  Sex: Female
  Weight: 2.572 kg

DRUGS (3)
  1. ZOLOFT [Suspect]
     Dosage: 50 MG, 2X/DAY
     Route: 064
  2. FLUVOXAMINE MALEATE [Suspect]
     Dosage: UNK
     Route: 064
  3. LEVOTOMIN [Suspect]
     Dosage: UNK
     Route: 064

REACTIONS (6)
  - MATERNAL EXPOSURE TIMING UNSPECIFIED [None]
  - DRUG WITHDRAWAL SYNDROME NEONATAL [None]
  - HYPOTONIA NEONATAL [None]
  - RESPIRATORY DISORDER NEONATAL [None]
  - CONVULSION NEONATAL [None]
  - INFANTILE APNOEIC ATTACK [None]
